FAERS Safety Report 5990000-2 (Version None)
Quarter: 2008Q4

REPORT INFORMATION
  Report Type: 
  Country: None (occurrence: None)
  Receive Date: 20081209
  Receipt Date: 20081209
  Transmission Date: 20090506
  Serious: No
  Sender: FDA-Public Use
  Company Number: None

PATIENT
  Age: 61 Year
  Sex: Female
  Weight: 45.3597 kg

DRUGS (1)
  1. LEVAQUIN [Suspect]
     Indication: LUNG INFECTION
     Dosage: 1 DOSE
     Dates: start: 20080913, end: 20080913

REACTIONS (3)
  - ANXIETY [None]
  - INSOMNIA [None]
  - NO REACTION ON PREVIOUS EXPOSURE TO DRUG [None]
